FAERS Safety Report 20305244 (Version 1)
Quarter: 2022Q1

REPORT INFORMATION
  Report Type: Spontaneous
  Country: US (occurrence: None)
  Receive Date: 20220106
  Receipt Date: 20220106
  Transmission Date: 20220423
  Serious: Yes (Other)
  Sender: FDA-Public Use
  Company Number: None

PATIENT
  Age: 59 Year
  Sex: Female
  Weight: 79.4 kg

DRUGS (5)
  1. REMDESIVIR [Suspect]
     Active Substance: REMDESIVIR
     Indication: COVID-19
     Dosage: FREQUENCY : DAILY;?
     Route: 042
     Dates: start: 20220104, end: 20220106
  2. dexamethasone 6 mg PO daily [Concomitant]
     Dates: start: 20220104
  3. enoxaparin 40 mg SQ q24h [Concomitant]
     Dates: start: 20220104
  4. losartan 50 mg PO daily [Concomitant]
     Dates: start: 20220104
  5. famotidine 20 mg PO BID [Concomitant]
     Dates: start: 20220104

REACTIONS (1)
  - Bradycardia [None]

NARRATIVE: CASE EVENT DATE: 20220106
